FAERS Safety Report 10149145 (Version 1)
Quarter: 2014Q2

REPORT INFORMATION
  Report Type: Spontaneous
  Country: US (occurrence: None)
  Receive Date: 20140430
  Receipt Date: 20140430
  Transmission Date: 20141212
  Serious: No
  Sender: FDA-Public Use
  Company Number: None

PATIENT
  Age: 71 Year
  Sex: Female
  Weight: 87.5 kg

DRUGS (1)
  1. OXALIPLATIN (ELOXATIN) [Suspect]
     Dates: start: 20140328

REACTIONS (5)
  - Hypersensitivity [None]
  - Nausea [None]
  - Rash [None]
  - Eyelid oedema [None]
  - Oedema peripheral [None]
